FAERS Safety Report 7648877-0 (Version None)
Quarter: 2011Q3

REPORT INFORMATION
  Report Type: 
  Country: None (occurrence: None)
  Receive Date: 20110801
  Receipt Date: 20110727
  Transmission Date: 20111222
  Serious: Yes (Death, Other)
  Sender: FDA-Public Use
  Company Number: PHHY2011PL67670

PATIENT
  Age: 12 Year
  Sex: Female

DRUGS (2)
  1. CYCLOSPORINE [Suspect]
     Indication: GRAFT VERSUS HOST DISEASE
  2. TACROLIMUS [Suspect]
     Dosage: UNK UKN, UNK

REACTIONS (6)
  - DRUG INEFFECTIVE [None]
  - POSTERIOR REVERSIBLE ENCEPHALOPATHY SYNDROME [None]
  - PARTIAL SEIZURES [None]
  - PLATELET COUNT DECREASED [None]
  - CEREBROVASCULAR INSUFFICIENCY [None]
  - LOSS OF CONSCIOUSNESS [None]
